FAERS Safety Report 5085612-7 (Version None)
Quarter: 2006Q3

REPORT INFORMATION
  Report Type: 
  Country: None (occurrence: None)
  Receive Date: 20060822
  Receipt Date: 20060818
  Transmission Date: 20061208
  Serious: Yes (Hospitalization)
  Sender: FDA-Public Use
  Company Number: J200603087

PATIENT
  Age: 12 Year
  Sex: Male

DRUGS (1)
  1. SAWACILLIN [Suspect]
     Indication: STREPTOCOCCAL INFECTION
     Dosage: 1000MG PER DAY
     Route: 048
     Dates: start: 20060803, end: 20060811

REACTIONS (5)
  - PRURIGO [None]
  - PRURITUS [None]
  - RASH [None]
  - SOMNOLENCE [None]
  - URTICARIA [None]
